FAERS Safety Report 19489642 (Version 2)
Quarter: 2021Q3

REPORT INFORMATION
  Report Type: Spontaneous
  Country: TH (occurrence: TH)
  Receive Date: 20210704
  Receipt Date: 20210707
  Transmission Date: 20211014
  Serious: Yes (Other)
  Sender: FDA-Public Use
  Company Number: TH-ORGANON-O2106THA002410

PATIENT
  Age: 20 Year
  Sex: Female

DRUGS (2)
  1. COVID?19 VACCINE NOS. [Suspect]
     Active Substance: COVID-19 VACCINE NOS
     Indication: COVID-19
     Dosage: 1 DOSAGE FORM
     Route: 030
     Dates: start: 20210628
  2. IMPLANON NXT [Suspect]
     Active Substance: ETONOGESTREL
     Indication: CONTRACEPTION
     Dosage: 1 IMPLANT
     Route: 059
     Dates: start: 20191216

REACTIONS (6)
  - Syncope [Not Recovered/Not Resolved]
  - Hypomenorrhoea [Unknown]
  - Dizziness [Not Recovered/Not Resolved]
  - Menometrorrhagia [Recovering/Resolving]
  - Intermenstrual bleeding [Recovering/Resolving]
  - Headache [Not Recovered/Not Resolved]

NARRATIVE: CASE EVENT DATE: 20191216
